FAERS Safety Report 5978237-X (Version None)
Quarter: 2008Q4

REPORT INFORMATION
  Report Type: 
  Country: None (occurrence: None)
  Receive Date: 20081204
  Receipt Date: 20081128
  Transmission Date: 20090506
  Serious: Yes (Death, Hospitalization)
  Sender: FDA-Public Use
  Company Number: GB-WYE-G02676008

PATIENT
  Age: 18 Year
  Sex: Female
  Weight: 55 kg

DRUGS (6)
  1. TAZOCIN [Suspect]
     Indication: MENINGITIS
     Dosage: UNKNOWN
  2. PREDNISOLONE [Concomitant]
     Dosage: UNKNOWN
  3. PHENYTOIN [Suspect]
  4. ACYCLOVIR [Suspect]
     Indication: MENINGITIS
     Dosage: UNKNOWN
  5. CEFOTAXIME SODIUM [Suspect]
     Indication: MENINGITIS
     Dosage: UNKNOWN
  6. GENTAMICIN [Suspect]
     Indication: LOWER RESPIRATORY TRACT INFECTION
     Dosage: UNKNOWN

REACTIONS (3)
  - MULTI-ORGAN FAILURE [None]
  - SEPSIS [None]
  - TOXIC EPIDERMAL NECROLYSIS [None]
